FAERS Safety Report 4906100-1 (Version None)
Quarter: 2006Q1

REPORT INFORMATION
  Report Type: 
  Country: None (occurrence: None)
  Receive Date: 20060207
  Receipt Date: 20060207
  Transmission Date: 20060701
  Serious: Yes (Hospitalization)
  Sender: FDA-Public Use
  Company Number: None

PATIENT
  Sex: Male
  Weight: 87.0906 kg

DRUGS (5)
  1. ASPIRIN [Suspect]
  2. ATENOLOL [Suspect]
  3. FUROSEMIDE [Suspect]
  4. LISINOPRIL [Suspect]
  5. GALANTAMINE  8 MG  BID   DEMENTIA [Suspect]

REACTIONS (2)
  - BLOOD PRESSURE ORTHOSTATIC DECREASED [None]
  - GASTROINTESTINAL HAEMORRHAGE [None]
